FAERS Safety Report 10073073 (Version 3)
Quarter: 2015Q3

REPORT INFORMATION
  Report Type: Spontaneous
  Country: IN (occurrence: IN)
  Receive Date: 20140411
  Receipt Date: 20150915
  Transmission Date: 20151125
  Serious: Yes (Other)
  Sender: FDA-Public Use
  Company Number: IN-009507513-1404IND005318

PATIENT
  Sex: Male
  Weight: 77 kg

DRUGS (1)
  1. JANUVIA [Suspect]
     Active Substance: SITAGLIPTIN PHOSPHATE
     Indication: DIABETES MELLITUS
     Dosage: 100 MG, QD
     Route: 048

REACTIONS (4)
  - Jaundice [Not Recovered/Not Resolved]
  - Rash [Not Recovered/Not Resolved]
  - Liver abscess [Not Recovered/Not Resolved]
  - Pruritus [Not Recovered/Not Resolved]
